FAERS Safety Report 5152706-7 (Version None)
Quarter: 2006Q4

REPORT INFORMATION
  Report Type: 
  Country: None (occurrence: None)
  Receive Date: 20061109
  Receipt Date: 20061030
  Transmission Date: 20070319
  Serious: Yes (Other)
  Sender: FDA-Public Use
  Company Number: L06-USA-04460-01

PATIENT
  Age: 35 Year
  Sex: Female

DRUGS (1)
  1. CITALOPRAM HYDROBROMIDE [Suspect]
     Indication: POSTPARTUM DEPRESSION

REACTIONS (3)
  - BLOOD FOLLICLE STIMULATING HORMONE INCREASED [None]
  - NIGHT SWEATS [None]
  - THERAPY NON-RESPONDER [None]
